FAERS Safety Report 15547814 (Version 3)
Quarter: 2018Q4

REPORT INFORMATION
  Report Type: Spontaneous
  Country: IT (occurrence: IT)
  Receive Date: 20181024
  Receipt Date: 20181217
  Transmission Date: 20190205
  Serious: Yes (Hospitalization, Other)
  Sender: FDA-Public Use
  Company Number: IT-SA-2018SA261448

PATIENT
  Age: 46 Year
  Sex: Female

DRUGS (3)
  1. LEMTRADA [Suspect]
     Active Substance: ALEMTUZUMAB
     Indication: MULTIPLE SCLEROSIS
     Dosage: 12 MG, QD
     Route: 041
     Dates: start: 201707
  2. LEMTRADA [Suspect]
     Active Substance: ALEMTUZUMAB
     Dosage: UNK UNK,
     Route: 041
  3. KEPPRA [Concomitant]
     Active Substance: LEVETIRACETAM
     Indication: EPILEPSY
     Route: 065

REACTIONS (26)
  - Speech disorder [Recovering/Resolving]
  - Petechiae [Recovered/Resolved]
  - Monocyte count abnormal [Unknown]
  - Lumbar puncture [Unknown]
  - Brain oedema [Recovering/Resolving]
  - Red blood cell count abnormal [Unknown]
  - Platelet count decreased [Unknown]
  - Eosinophil count abnormal [Unknown]
  - Mean cell haemoglobin decreased [Unknown]
  - Partial seizures [Unknown]
  - Contusion [Recovered/Resolved]
  - Haemoglobin decreased [Unknown]
  - Epistaxis [Recovered/Resolved]
  - Gingival bleeding [Recovered/Resolved]
  - Basophil count abnormal [Unknown]
  - Abnormal behaviour [Recovering/Resolving]
  - Immune thrombocytopenic purpura [Recovered/Resolved]
  - Menorrhagia [Recovered/Resolved]
  - T-lymphocyte count abnormal [Unknown]
  - Mean cell volume decreased [Unknown]
  - Encephalitis [Recovering/Resolving]
  - Central nervous system lesion [Recovering/Resolving]
  - Haematocrit decreased [Unknown]
  - Aphasia [Recovered/Resolved]
  - White blood cell count abnormal [Unknown]
  - Neutrophil count abnormal [Unknown]

NARRATIVE: CASE EVENT DATE: 201805
